FAERS Safety Report 14496571 (Version 2)
Quarter: 2018Q2

REPORT INFORMATION
  Report Type: Report from Study
  Country: TW (occurrence: TW)
  Receive Date: 20180207
  Receipt Date: 20180530
  Transmission Date: 20180711
  Serious: Yes (Hospitalization)
  Sender: FDA-Public Use
  Company Number: PHHY2014TW162663

PATIENT
  Age: 53 Year
  Sex: Male
  Weight: 75 kg

DRUGS (14)
  1. GENTAMYCIN SULFATE [Concomitant]
     Active Substance: GENTAMICIN SULFATE
     Indication: INFECTION PROPHYLAXIS
     Dosage: 1 DF, UNK
     Route: 042
     Dates: start: 20151210, end: 20151221
  2. PANTOLOC [Concomitant]
     Active Substance: PANTOPRAZOLE SODIUM
     Indication: PROPHYLAXIS
     Dosage: 40 MG, UNK
     Route: 042
     Dates: start: 20151210, end: 20151211
  3. RINDERON V [Concomitant]
     Active Substance: BETAMETHASONE VALERATE
     Indication: PROPHYLAXIS
     Dosage: 1 DF, UNK
     Route: 042
     Dates: start: 20151210, end: 20151211
  4. CEPHRADINE [Concomitant]
     Active Substance: CEPHRADINE
     Indication: INFECTION PROPHYLAXIS
     Dosage: 1 G, UNK
     Route: 042
     Dates: start: 20151210, end: 20151217
  5. TASIGNA [Suspect]
     Active Substance: NILOTINIB
     Dosage: 300 MG, UNK
     Route: 048
     Dates: start: 20140402, end: 20140408
  6. GOWELL [Concomitant]
     Indication: PROPHYLAXIS
     Dosage: 1 DF, UNK
     Route: 048
     Dates: start: 20151210, end: 20151211
  7. TASIGNA [Suspect]
     Active Substance: NILOTINIB
     Indication: CHRONIC MYELOID LEUKAEMIA
     Dosage: 600 MG, UNK
     Route: 048
     Dates: start: 20140305, end: 20140401
  8. TASIGNA [Suspect]
     Active Substance: NILOTINIB
     Dosage: 600 MG, QD
     Route: 048
     Dates: start: 20140409
  9. DULCOLAX NOS [Concomitant]
     Active Substance: BISACODYL OR DOCUSATE SODIUM
     Indication: PROPHYLAXIS
     Dosage: 5 MG, UNK
     Dates: start: 20151221, end: 20151221
  10. LACTUL [Concomitant]
     Indication: PROPHYLAXIS
     Dosage: 300 ML/BO, UNK
     Route: 048
     Dates: start: 20151221, end: 20151221
  11. SEDICON [Concomitant]
     Indication: PROPHYLAXIS
     Dosage: 1 DF, UNK
     Route: 048
     Dates: start: 20151224, end: 20151227
  12. APO-TRAMADOL [Concomitant]
     Active Substance: TRAMADOL
     Indication: PROPHYLAXIS
     Dosage: 325 MG, UNK
     Route: 048
     Dates: start: 20151210, end: 20151222
  13. CEPHRADINE [Concomitant]
     Active Substance: CEPHRADINE
     Dosage: 1 G, UNK
     Route: 042
     Dates: start: 20151217, end: 20151221
  14. SENNAPUR [Concomitant]
     Indication: PROPHYLAXIS
     Dosage: 12.5 MG, UNK
     Route: 048
     Dates: start: 20151211

REACTIONS (11)
  - Infected skin ulcer [Recovered/Resolved]
  - Wound complication [Recovered/Resolved]
  - Blood creatinine decreased [Unknown]
  - Localised infection [Recovered/Resolved]
  - Osteomyelitis [Recovered/Resolved]
  - Arthralgia [Recovered/Resolved]
  - Joint swelling [Recovered/Resolved]
  - Neutrophil count increased [Unknown]
  - Red blood cell count decreased [Unknown]
  - Skin ulcer [Recovering/Resolving]
  - Wound secretion [Recovered/Resolved]

NARRATIVE: CASE EVENT DATE: 20141113
